FAERS Safety Report 24618078 (Version 1)
Quarter: 2024Q4

REPORT INFORMATION
  Report Type: Spontaneous
  Country: CN (occurrence: CN)
  Receive Date: 20241114
  Receipt Date: 20241114
  Transmission Date: 20250115
  Serious: Yes (Life-Threatening, Other)
  Sender: BAXTER
  Company Number: None

PATIENT
  Age: 44 Year
  Sex: Female
  Weight: 65 kg

DRUGS (4)
  1. CYCLOPHOSPHAMIDE [Suspect]
     Active Substance: CYCLOPHOSPHAMIDE
     Indication: Breast cancer female
     Dosage: 1000 MG, ONE TIME IN ONE DAY, DAY 1
     Route: 041
     Dates: start: 20241010, end: 20241010
  2. CYCLOPHOSPHAMIDE [Suspect]
     Active Substance: CYCLOPHOSPHAMIDE
     Indication: Chemotherapy
  3. DOXORUBICIN HYDROCHLORIDE [Suspect]
     Active Substance: DOXORUBICIN HYDROCHLORIDE
     Indication: Breast cancer female
     Dosage: 60 MG, ONE TIME IN ONE DAY, DAY 2 Q3W; DOSAGE FORM: INJECTION SOLUTION
     Route: 041
     Dates: start: 20241011, end: 20241011
  4. DOXORUBICIN HYDROCHLORIDE [Suspect]
     Active Substance: DOXORUBICIN HYDROCHLORIDE
     Indication: Chemotherapy

REACTIONS (2)
  - Drug-induced liver injury [Recovering/Resolving]
  - Myelosuppression [Recovering/Resolving]

NARRATIVE: CASE EVENT DATE: 20241030
